FAERS Safety Report 8156456-4 (Version None)
Quarter: 2012Q1

REPORT INFORMATION
  Report Type: 
  Country: None (occurrence: None)
  Receive Date: 20120216
  Receipt Date: 20120206
  Transmission Date: 20120608
  Serious: Yes (Other)
  Sender: FDA-Public Use
  Company Number: GGEL20120200131

PATIENT
  Age: 44 Year
  Sex: Male

DRUGS (2)
  1. HYDROCHLOROTHIAZIDE [Concomitant]
  2. SULFAMETHOXAZOLE AND TRIMETHOPRIM [Suspect]
     Indication: RASH MACULO-PAPULAR
     Dosage: 160/800 MG TWICE DAILY, TWICE A DAY

REACTIONS (1)
  - PAROTITIS [None]
